FAERS Safety Report 10489238 (Version 1)
Quarter: 2014Q4

REPORT INFORMATION
  Report Type: Spontaneous
  Country: US (occurrence: US)
  Receive Date: 20141002
  Receipt Date: 20141002
  Transmission Date: 20150528
  Serious: No
  Sender: FDA-Public Use
  Company Number: US-PFIZER INC-2014267885

PATIENT
  Sex: Female

DRUGS (2)
  1. ADVIL MIGRAINE [Suspect]
     Active Substance: IBUPROFEN
     Indication: MIGRAINE
     Dosage: TWO CAPSULES
  2. ADVIL MIGRAINE [Suspect]
     Active Substance: IBUPROFEN
     Dosage: THREE CAPSULES

REACTIONS (2)
  - Nervousness [Unknown]
  - Overdose [Unknown]
